FAERS Safety Report 12250236 (Version 1)
Quarter: 2016Q2

REPORT INFORMATION
  Report Type: Spontaneous
  Country: GB (occurrence: GB)
  Receive Date: 20160408
  Receipt Date: 20160408
  Transmission Date: 20160815
  Serious: Yes (Life-Threatening, Other)
  Sender: FDA-Public Use
  Company Number: GB-009507513-1604GBR001160

PATIENT
  Sex: Male

DRUGS (1)
  1. TEMOZOLOMIDE. [Suspect]
     Active Substance: TEMOZOLOMIDE
     Indication: SPINDLE CELL SARCOMA
     Dosage: 75 MG/M2, CYCLICAL
     Route: 048

REACTIONS (10)
  - Mucosal inflammation [Unknown]
  - Neutropenia [Unknown]
  - Decreased appetite [Unknown]
  - Anaemia [Unknown]
  - Nausea [Unknown]
  - Vomiting [Unknown]
  - Thrombocytopenia [Unknown]
  - Lymphopenia [Unknown]
  - Oesophagitis [Unknown]
  - Fatigue [Unknown]
